FAERS Safety Report 7181020-3 (Version None)
Quarter: 2010Q4

REPORT INFORMATION
  Report Type: 
  Country: None (occurrence: None)
  Receive Date: 20101221
  Receipt Date: 20100415
  Transmission Date: 20110411
  Serious: No
  Sender: FDA-Public Use
  Company Number: US-AMGEN-TCS406661

PATIENT

DRUGS (2)
  1. ENBREL [Suspect]
     Indication: PRODUCT USED FOR UNKNOWN INDICATION
     Dosage: 50 MG, QWK
     Route: 058
     Dates: start: 20100413
  2. LEFLUNOMIDE [Concomitant]
     Dosage: UNK UNK, UNK
     Dates: start: 20100325

REACTIONS (7)
  - COLD SWEAT [None]
  - COUGH [None]
  - HEADACHE [None]
  - HYPERHIDROSIS [None]
  - NASAL CONGESTION [None]
  - NASOPHARYNGITIS [None]
  - RHINORRHOEA [None]
